FAERS Safety Report 9302983 (Version 3)
Quarter: 2013Q3

REPORT INFORMATION
  Report Type: Spontaneous
  Country: US (occurrence: US)
  Receive Date: 20130522
  Receipt Date: 20130722
  Transmission Date: 20140515
  Serious: Yes (Hospitalization)
  Sender: FDA-Public Use
  Company Number: US-PFIZER INC-2013154396

PATIENT
  Age: 65 Year
  Sex: Female
  Weight: 118 kg

DRUGS (7)
  1. REVATIO [Suspect]
     Dosage: 40 MG, 3X/DAY
     Dates: start: 201111
  2. REVATIO [Suspect]
     Dosage: 20 MG, 3X/DAY
     Dates: end: 201304
  3. REVATIO [Suspect]
     Dosage: UNK
  4. XARELTO [Concomitant]
     Indication: ANTICOAGULANT THERAPY
     Dosage: 5 MG, UNK
  5. HYDRALAZINE [Concomitant]
     Indication: CARDIAC DISORDER
     Dosage: UNK
  6. METOPROLOL [Concomitant]
     Indication: HYPERTENSION
     Dosage: UNK
  7. POTASSIUM [Concomitant]
     Dosage: 160 MG, 1X/DAY

REACTIONS (2)
  - Off label use [Recovered/Resolved]
  - Chest pain [Unknown]
